FAERS Safety Report 7819352-5 (Version None)
Quarter: 2011Q4

REPORT INFORMATION
  Report Type: 
  Country: None (occurrence: None)
  Receive Date: 20111018
  Receipt Date: 20110218
  Transmission Date: 20120403
  Serious: No
  Sender: FDA-Public Use
  Company Number: US-ASTRAZENECA-2011SE09533

PATIENT
  Age: 68 Year
  Sex: Female

DRUGS (1)
  1. SYMBICORT [Suspect]
     Indication: CHRONIC OBSTRUCTIVE PULMONARY DISEASE
     Dosage: 160/4.5 MCG TWO TIMES A DAY
     Route: 055

REACTIONS (2)
  - CRYING [None]
  - MOOD SWINGS [None]
